FAERS Safety Report 7786938-6 (Version None)
Quarter: 2011Q3

REPORT INFORMATION
  Report Type: 
  Country: None (occurrence: None)
  Receive Date: 20110929
  Receipt Date: 20110927
  Transmission Date: 20111222
  Serious: Yes (Death)
  Sender: FDA-Public Use
  Company Number: BR-ABBOTT-11P-020-0858463-00

PATIENT
  Sex: Female
  Weight: 40 kg

DRUGS (1)
  1. HUMIRA [Suspect]
     Indication: RHEUMATOID ARTHRITIS
     Route: 058
     Dates: start: 20110101, end: 20110801

REACTIONS (6)
  - PYREXIA [None]
  - APATHY [None]
  - ACUTE PULMONARY OEDEMA [None]
  - COUGH [None]
  - DIARRHOEA [None]
  - PNEUMONIA [None]
